FAERS Safety Report 8601005-7 (Version None)
Quarter: 2012Q2

REPORT INFORMATION
  Report Type: 
  Country: None (occurrence: None)
  Receive Date: 20120423
  Receipt Date: 20100927
  Transmission Date: 20120825
  Serious: Yes (Disabling, Other)
  Sender: FDA-Public Use
  Company Number: PHEH2010US01351

PATIENT
  Age: 69 Year
  Sex: Female
  Weight: 85.3 kg

DRUGS (14)
  1. FEMARA [Suspect]
     Indication: BREAST CANCER
     Dosage: 2.5 MG, QD, ORAL, 2.5 MG, QD, ORAL, 2.5 MG, DAILY, ORAL
     Route: 048
     Dates: start: 20090923, end: 20091124
  2. FEMARA [Suspect]
     Indication: BREAST CANCER
     Dosage: 2.5 MG, QD, ORAL, 2.5 MG, QD, ORAL, 2.5 MG, DAILY, ORAL
     Route: 048
     Dates: start: 20091001, end: 20100301
  3. NIACIN [Concomitant]
  4. ASPIRIN [Concomitant]
  5. COZAAR [Concomitant]
  6. LIPITOR [Concomitant]
  7. FOLIC ACID [Concomitant]
  8. MULTI-VITI (VITAMINS NOS) [Concomitant]
  9. CALCIUM WITH VITAMIN D (CALCIUM PHOSPHATE, CALCIUM SODIUM LACTATE, ERG [Concomitant]
  10. PATANOL [Concomitant]
  11. IRON SUPPLEMENTS [Concomitant]
  12. LEVOTHROID [Concomitant]
  13. TRIAM-TIAZIDA R (HYDROCHLOROTHIAZIDE, TRIAMTERENE) [Concomitant]
  14. FLEXERIL [Concomitant]

REACTIONS (5)
  - ARTHRALGIA [None]
  - MYALGIA [None]
  - BACK PAIN [None]
  - PAIN [None]
  - SLEEP DISORDER [None]
